FAERS Safety Report 5224401-7 (Version None)
Quarter: 2007Q1

REPORT INFORMATION
  Report Type: 
  Country: None (occurrence: None)
  Receive Date: 20070130
  Receipt Date: 20070122
  Transmission Date: 20070707
  Serious: Yes (Hospitalization, Other)
  Sender: FDA-Public Use
  Company Number: JP-PFIZER INC-2006083446

PATIENT
  Age: 16 Year
  Sex: Female

DRUGS (5)
  1. GENOTROPIN [Suspect]
     Indication: PRADER-WILLI SYNDROME
     Dosage: TEXT:10 MG /WEEK-FREQ:5 TIMES/ WEEK
     Route: 058
  2. GENOTROPIN [Suspect]
     Dosage: TEXT:16 IU/WEEK-FREQ:5 TIMES WEEKLY
     Route: 058
  3. GENOTROPIN [Suspect]
     Dosage: TEXT:5.3 MG/WEEK-FREQ:5 TIMES WEEKLY
     Route: 058
  4. GENOTROPIN [Suspect]
     Dosage: TEXT:8.9MG/ WEEK-FREQ:5 TIMES WEEKLY
     Route: 058
  5. GENOTROPIN [Suspect]
     Dosage: TEXT:10MG/ WEEK-FREQ:5 TIMES WEEKLY
     Route: 058
     Dates: start: 20040514, end: 20050514

REACTIONS (1)
  - SYSTEMIC LUPUS ERYTHEMATOSUS [None]
